FAERS Safety Report 13883109 (Version 1)
Quarter: 2017Q3

REPORT INFORMATION
  Report Type: Report from Study
  Country: US (occurrence: BR)
  Receive Date: 20170818
  Receipt Date: 20170818
  Transmission Date: 20171127
  Serious: Yes (Life-Threatening)
  Sender: FDA-Public Use
  Company Number: US-SUNOVION-2017SUN003690

PATIENT
  Sex: Female
  Weight: 57 kg

DRUGS (2)
  1. INDACATEROL AND GLYCOPYRROLATE [Suspect]
     Active Substance: GLYCOPYRROLATE\INDACATEROL MALEATE
     Indication: PLEURAL EFFUSION
     Route: 055
  2. NIQUITIN [Concomitant]
     Active Substance: NICOTINE

REACTIONS (4)
  - Body surface area decreased [Unknown]
  - Apparent death [Unknown]
  - Product use in unapproved indication [Unknown]
  - Inappropriate schedule of drug administration [Unknown]
